FAERS Safety Report 12328730 (Version 1)
Quarter: 2016Q2

REPORT INFORMATION
  Report Type: Spontaneous
  Country: US (occurrence: US)
  Receive Date: 20160503
  Receipt Date: 20160503
  Transmission Date: 20160815
  Serious: No
  Sender: FDA-Public Use
  Company Number: US-BEH-2015050413

PATIENT
  Sex: Female
  Weight: 85 kg

DRUGS (21)
  1. PRILOSEC [Concomitant]
     Active Substance: OMEPRAZOLE MAGNESIUM
  2. HIZENTRA [Suspect]
     Active Substance: HUMAN IMMUNOGLOBULIN G
     Indication: IMMUNODEFICIENCY COMMON VARIABLE
     Dosage: 2 G 10 ML VIAL
     Route: 058
     Dates: start: 201310
  3. ACETAMINOPHEN. [Concomitant]
     Active Substance: ACETAMINOPHEN
  4. LIDOCAINE/PRILOCAINE [Concomitant]
  5. CLONAZEPAM. [Concomitant]
     Active Substance: CLONAZEPAM
  6. COENZYME Q10 [Concomitant]
     Active Substance: UBIDECARENONE
  7. PV JOINT SUPPORT [Concomitant]
  8. DIPHENHYDRAMINE. [Concomitant]
     Active Substance: DIPHENHYDRAMINE
  9. EPIPEN [Concomitant]
     Active Substance: EPINEPHRINE
  10. BUPROPION. [Concomitant]
     Active Substance: BUPROPION
  11. HYDROCODONE BITARTRATE AND ACETAMINOPHEN [Concomitant]
     Active Substance: ACETAMINOPHEN\HYDROCODONE BITARTRATE
  12. VITAMIN D3 [Concomitant]
     Active Substance: CHOLECALCIFEROL
  13. SINGULAIR [Concomitant]
     Active Substance: MONTELUKAST SODIUM
  14. LMX [Concomitant]
     Active Substance: LIDOCAINE
  15. VITAMIN C [Concomitant]
     Active Substance: ASCORBIC ACID
  16. MAGNESIUM [Concomitant]
     Active Substance: MAGNESIUM
  17. L-LYSINE [Concomitant]
     Active Substance: LYSINE
  18. ASPIRIN. [Concomitant]
     Active Substance: ASPIRIN
  19. WELLBUTRIN [Concomitant]
     Active Substance: BUPROPION HYDROCHLORIDE
  20. CENTRUM SILVER [Concomitant]
     Active Substance: MINERALS\VITAMINS
  21. VITAMIN D1 [Concomitant]

REACTIONS (3)
  - Malaise [Unknown]
  - Pain [Unknown]
  - Arthralgia [Unknown]
